FAERS Safety Report 6474802-4 (Version None)
Quarter: 2009Q4

REPORT INFORMATION
  Report Type: 
  Country: None (occurrence: None)
  Receive Date: 20091204
  Receipt Date: 20091201
  Transmission Date: 20100525
  Serious: Yes (Hospitalization)
  Sender: FDA-Public Use
  Company Number: CHPA2009US22580

PATIENT
  Age: 29 Year
  Sex: Female
  Weight: 56.689 kg

DRUGS (1)
  1. EXCEDRIN PM (NCH) [Suspect]
     Indication: INSOMNIA
     Dosage: 2 DF, QHS
     Route: 048
     Dates: end: 20091125

REACTIONS (2)
  - CONVULSION [None]
  - DRUG INEFFECTIVE [None]
